FAERS Safety Report 8075395-0 (Version None)
Quarter: 2012Q1

REPORT INFORMATION
  Report Type: 
  Country: None (occurrence: None)
  Receive Date: 20120127
  Receipt Date: 20120124
  Transmission Date: 20120608
  Serious: No
  Sender: FDA-Public Use
  Company Number: US-PFIZER INC-2011280003

PATIENT
  Sex: Male
  Weight: 106.6 kg

DRUGS (3)
  1. METFORMIN [Concomitant]
     Dosage: UNK
  2. NARDIL [Suspect]
     Indication: DEPRESSION
     Dosage: 15 MG, 4X/DAY
     Route: 048
  3. WARFARIN [Concomitant]
     Dosage: UNK

REACTIONS (2)
  - ARTHROPATHY [None]
  - ARTHRALGIA [None]
